FAERS Safety Report 10181427 (Version 1)
Quarter: 2014Q2

REPORT INFORMATION
  Report Type: Spontaneous
  Country: US (occurrence: US)
  Receive Date: 20140519
  Receipt Date: 20140519
  Transmission Date: 20141212
  Serious: Yes (Hospitalization)
  Sender: FDA-Public Use
  Company Number: US-BRISTOL-MYERS SQUIBB COMPANY-20724001

PATIENT
  Age: 20 Year
  Sex: Female
  Weight: 77.1 kg

DRUGS (6)
  1. ABILIFY [Suspect]
     Dosage: INITIALLY 5 MG
  2. BUPROPION [Concomitant]
  3. CLONAZEPAM [Concomitant]
  4. GABAPENTIN [Concomitant]
     Indication: SLEEP DISORDER
  5. LAMOTRIGINE [Concomitant]
  6. VENLAFAXINE HCL [Concomitant]

REACTIONS (1)
  - Mania [Unknown]
